FAERS Safety Report 21521437 (Version 2)
Quarter: 2022Q4

REPORT INFORMATION
  Report Type: Report from Study
  Country: US (occurrence: US)
  Receive Date: 20221028
  Receipt Date: 20221031
  Transmission Date: 20230113
  Serious: Yes (Death)
  Sender: FDA-Public Use
  Company Number: US-UCBSA-2022062149

PATIENT
  Age: 11 Year
  Sex: Female

DRUGS (4)
  1. FINTEPLA [Suspect]
     Active Substance: FENFLURAMINE
     Indication: Product used for unknown indication
     Dosage: 2.3 MILLILITER, 2X/DAY (BID)
     Dates: start: 20210925, end: 20220615
  2. TOPAMAX [Concomitant]
     Active Substance: TOPIRAMATE
     Indication: Lennox-Gastaut syndrome
  3. DIASTAT ACUDIAL [Concomitant]
     Active Substance: DIAZEPAM
     Indication: Lennox-Gastaut syndrome
  4. MELATONIN [Concomitant]
     Active Substance: MELATONIN
     Indication: Insomnia

REACTIONS (1)
  - Death [Fatal]

NARRATIVE: CASE EVENT DATE: 20221014
